FAERS Safety Report 4400821-5 (Version None)
Quarter: 2004Q3

REPORT INFORMATION
  Report Type: 
  Country: None (occurrence: None)
  Receive Date: 20040907
  Receipt Date: 20030624
  Transmission Date: 20050211
  Serious: Yes (Hospitalization)
  Sender: FDA-Public Use
  Company Number: US-BRISTOL-MYERS SQUIBB COMPANY-12309183

PATIENT
  Age: 68 Year
  Sex: Female
  Weight: 67 kg

DRUGS (5)
  1. COUMADIN [Suspect]
     Indication: CEREBROVASCULAR ACCIDENT
     Dosage: ALTERNATING SCHEDULE: 7.5 MG X 6 DYS/WK + 10 MG ON SUNDAYS
     Route: 048
     Dates: start: 19960101
  2. NORVASC [Concomitant]
  3. XALATAN [Concomitant]
     Indication: GLAUCOMA
     Route: 031
  4. RHINOCORT [Concomitant]
     Route: 045
  5. PREDNISONE [Concomitant]
     Indication: RHEUMATOID ARTHRITIS

REACTIONS (4)
  - CONTUSION [None]
  - FATIGUE [None]
  - HAEMORRHAGE [None]
  - PROTHROMBIN TIME PROLONGED [None]
